FAERS Safety Report 7464081-3 (Version None)
Quarter: 2011Q2

REPORT INFORMATION
  Report Type: 
  Country: None (occurrence: None)
  Receive Date: 20110506
  Receipt Date: 20110504
  Transmission Date: 20111010
  Serious: Yes (Disabling)
  Sender: FDA-Public Use
  Company Number: AU-ABBOTT-11P-008-0723289-00

PATIENT
  Sex: Male
  Weight: 85 kg

DRUGS (1)
  1. HUMIRA [Suspect]
     Indication: PRODUCT USED FOR UNKNOWN INDICATION
     Route: 030
     Dates: start: 20100501, end: 20100624

REACTIONS (2)
  - CUTANEOUS VASCULITIS [None]
  - LEUKOCYTOCLASTIC VASCULITIS [None]
